FAERS Safety Report 15430731 (Version 2)
Quarter: 2018Q4

REPORT INFORMATION
  Report Type: Report from Study
  Country: HU (occurrence: HU)
  Receive Date: 20180926
  Receipt Date: 20181003
  Transmission Date: 20190204
  Serious: Yes (Hospitalization)
  Sender: FDA-Public Use
  Company Number: HU-PFIZER INC-2018340116

PATIENT
  Age: 41 Year
  Sex: Male
  Weight: 72 kg

DRUGS (11)
  1. SUNITINIB MALATE. [Suspect]
     Active Substance: SUNITINIB MALATE
     Indication: RENAL CELL CARCINOMA
     Dosage: 50 MG, 1X/DAY (QD) (FOR 4 WEEKS AND THEN OFF TREATMENT FOR 2 WEEKS))
     Route: 048
     Dates: start: 20161215, end: 20180711
  2. FAMOTIDINE. [Concomitant]
     Active Substance: FAMOTIDINE
     Dosage: 40 MG, UNK
     Dates: start: 20171116
  3. MEGESTROL ACETATE. [Concomitant]
     Active Substance: MEGESTROL ACETATE
     Dosage: 20 ML, UNK
     Route: 048
     Dates: start: 20170406
  4. L-THYROXIN [LEVOTHYROXINE SODIUM] [Concomitant]
     Dosage: 75 UG, UNK
     Dates: start: 20180503, end: 20180725
  5. L-THYROXIN [Suspect]
     Active Substance: LEVOTHYROXINE SODIUM
     Indication: HYPOTHYROIDISM
     Dosage: 100 UG, DAILY
     Route: 048
     Dates: start: 20180726
  6. NUTRIDRINK COMPACT [Concomitant]
     Dosage: 2 DF, UNK
     Route: 048
     Dates: start: 20170406
  7. IRBESARTAN HCT SANDOZ [Concomitant]
     Dosage: 225 MG, QD
     Route: 048
     Dates: start: 20170518
  8. CONCOR COR [Suspect]
     Active Substance: BISOPROLOL FUMARATE
     Indication: HYPERTENSION
     Dosage: 2.5 MG, DAILY
     Route: 048
     Dates: start: 20160903, end: 20171115
  9. CONCOR [Concomitant]
     Active Substance: BISOPROLOL FUMARATE
     Dosage: 5 MG, UNK
     Dates: start: 20171202
  10. SUNITINIB MALATE. [Suspect]
     Active Substance: SUNITINIB MALATE
     Dosage: 50 MG, 1X/DAY (ONCE DAILY (QD) FOR 4 WEEKS)
     Route: 048
     Dates: start: 20180726, end: 20180801
  11. MEGESTROL ACETATE. [Concomitant]
     Active Substance: MEGESTROL ACETATE
     Dosage: 20 ML, UNK
     Dates: start: 20171116

REACTIONS (2)
  - Gastrointestinal toxicity [Recovered/Resolved]
  - Suicide attempt [Recovered/Resolved]

NARRATIVE: CASE EVENT DATE: 20180801
